FAERS Safety Report 5387147-0 (Version None)
Quarter: 2007Q3

REPORT INFORMATION
  Report Type: 
  Country: None (occurrence: None)
  Receive Date: 20070711
  Receipt Date: 20070702
  Transmission Date: 20080115
  Serious: Yes (Other)
  Sender: FDA-Public Use
  Company Number: 153114USA

PATIENT
  Age: 30 Year
  Sex: Female
  Weight: 105.6881 kg

DRUGS (7)
  1. COPAXONE [Suspect]
     Indication: MULTIPLE SCLEROSIS
     Dosage: (20 MG), SUBCUTANEOUS
     Route: 058
     Dates: start: 20070101, end: 20070219
  2. NIFEDIPINE [Concomitant]
  3. DYAZIDE [Concomitant]
  4. LISINOPRIL [Concomitant]
  5. LABETALOL HCL [Concomitant]
  6. NAPROXEN [Concomitant]
  7. VICODIN [Concomitant]

REACTIONS (7)
  - EMBOLISM [None]
  - FIBRIN D DIMER INCREASED [None]
  - HAEMATOCRIT DECREASED [None]
  - HAEMOGLOBIN DECREASED [None]
  - THROMBOANGIITIS OBLITERANS [None]
  - VASCULITIS [None]
  - WHITE BLOOD CELL COUNT INCREASED [None]
